FAERS Safety Report 14941394 (Version 5)
Quarter: 2018Q2

REPORT INFORMATION
  Report Type: Spontaneous
  Country: US (occurrence: US)
  Receive Date: 20180526
  Receipt Date: 20180606
  Transmission Date: 20180711
  Serious: No
  Sender: FDA-Public Use
  Company Number: US-TEVA-2018-US-895161

PATIENT
  Age: 50 Year
  Sex: Female

DRUGS (2)
  1. PROTONIX [Suspect]
     Active Substance: PANTOPRAZOLE SODIUM
     Indication: GASTRITIS
     Route: 065
  2. ALPRAZOLAM. [Suspect]
     Active Substance: ALPRAZOLAM
     Indication: PANIC DISORDER
     Dates: start: 20180501

REACTIONS (5)
  - Urticaria [Unknown]
  - Panic attack [Unknown]
  - Product physical issue [Unknown]
  - Hypersensitivity [Unknown]
  - Urticaria [Unknown]

NARRATIVE: CASE EVENT DATE: 20180504
